FAERS Safety Report 12165766 (Version 4)
Quarter: 2017Q1

REPORT INFORMATION
  Report Type: Spontaneous
  Country: JP (occurrence: JP)
  Receive Date: 20160309
  Receipt Date: 20170119
  Transmission Date: 20170428
  Serious: Yes (Other)
  Sender: FDA-Public Use
  Company Number: JP-JNJFOC-20150517020

PATIENT

DRUGS (4)
  1. PEGASYS [Suspect]
     Active Substance: PEGINTERFERON ALFA-2A
     Indication: CHRONIC HEPATITIS C
     Route: 058
  2. COPEGUS [Suspect]
     Active Substance: RIBAVIRIN
     Indication: CHRONIC HEPATITIS C
     Dosage: WEIGHT BASED
     Route: 048
  3. PEGINTRON [Suspect]
     Active Substance: PEGINTERFERON ALFA-2B
     Indication: CHRONIC HEPATITIS C
     Route: 065
  4. SOVRIAD [Suspect]
     Active Substance: SIMEPREVIR
     Indication: CHRONIC HEPATITIS C
     Dosage: FOR 12 WEEKS
     Route: 048

REACTIONS (16)
  - Hepatocellular carcinoma [Unknown]
  - Hyperbilirubinaemia [Unknown]
  - Hepatitis C RNA increased [Unknown]
  - Eye haemorrhage [Unknown]
  - Rash [Unknown]
  - Anaemia [Unknown]
  - Treatment noncompliance [Unknown]
  - Adverse reaction [Unknown]
  - Pancytopenia [Unknown]
  - Remission not achieved [Unknown]
  - Blood bilirubin increased [Unknown]
  - Hyperthyroidism [Unknown]
  - Drug ineffective [Unknown]
  - Decreased appetite [Unknown]
  - Alanine aminotransferase increased [Unknown]
  - Pyrexia [Unknown]
